FAERS Safety Report 11813271 (Version 1)
Quarter: 2015Q4

REPORT INFORMATION
  Report Type: Spontaneous
  Country: US (occurrence: None)
  Receive Date: 20151208
  Receipt Date: 20151208
  Transmission Date: 20160305
  Serious: No
  Sender: FDA-Public Use
  Company Number: None

PATIENT
  Age: 53 Year
  Sex: Female

DRUGS (23)
  1. HYDROCO/APP [Concomitant]
  2. BENADRYL [Concomitant]
     Active Substance: DIPHENHYDRAMINE HYDROCHLORIDE
  3. CARAFATE [Concomitant]
     Active Substance: SUCRALFATE
  4. ENBREL [Concomitant]
     Active Substance: ETANERCEPT
  5. BUT/ASA/CAFF [Concomitant]
     Active Substance: BUTALBITAL\CAFFEINE\SALICYLIC ACID
  6. FAMOTIDINE. [Concomitant]
     Active Substance: FAMOTIDINE
  7. PREDNISONE. [Concomitant]
     Active Substance: PREDNISONE
  8. CYMBALTA [Concomitant]
     Active Substance: DULOXETINE HYDROCHLORIDE
  9. ESTRADIOL. [Concomitant]
     Active Substance: ESTRADIOL
  10. FLUTICASONE [Concomitant]
     Active Substance: FLUTICASONE\FLUTICASONE PROPIONATE
  11. MULTI [Concomitant]
  12. PRILOSEC [Concomitant]
     Active Substance: OMEPRAZOLE MAGNESIUM
  13. PROBOTIC [Concomitant]
     Active Substance: PROBIOTICS NOS
  14. FUROSEMIDE. [Concomitant]
     Active Substance: FUROSEMIDE
  15. POTASSIUM [Concomitant]
     Active Substance: POTASSIUM
  16. VITAMIN B12 [Concomitant]
     Active Substance: CYANOCOBALAMIN
  17. XELJANZ [Suspect]
     Active Substance: TOFACITINIB CITRATE
     Indication: ANKYLOSING SPONDYLITIS
     Route: 048
     Dates: start: 20150312
  18. ATENOLOL. [Concomitant]
     Active Substance: ATENOLOL
  19. BEANO [Concomitant]
     Active Substance: ASPERGILLUS NIGER .ALPHA.-GALACTOSIDASE
  20. TYLENOL [Concomitant]
     Active Substance: ACETAMINOPHEN
  21. CIMZIA PREFL KIT [Concomitant]
  22. HUMIRA [Concomitant]
     Active Substance: ADALIMUMAB
  23. VOLTAREN [Concomitant]
     Active Substance: DICLOFENAC SODIUM

REACTIONS (1)
  - Herpes zoster [None]

NARRATIVE: CASE EVENT DATE: 201511
